FAERS Safety Report 25914091 (Version 1)
Quarter: 2025Q4

REPORT INFORMATION
  Report Type: Spontaneous
  Country: EU (occurrence: EU)
  Receive Date: 20251013
  Receipt Date: 20251013
  Transmission Date: 20260117
  Serious: Yes (Death)
  Sender: PFIZER
  Company Number: EU-PFIZER INC-202500200230

PATIENT
  Sex: Male

DRUGS (1)
  1. TAVOR (LORAZEPAM) [Suspect]
     Active Substance: LORAZEPAM

REACTIONS (2)
  - Death [Fatal]
  - Wrong technique in product usage process [Unknown]
